FAERS Safety Report 6734711-X (Version None)
Quarter: 2010Q2

REPORT INFORMATION
  Report Type: 
  Country: None (occurrence: None)
  Receive Date: 20100519
  Receipt Date: 20100519
  Transmission Date: 20101027
  Serious: Yes (Hospitalization)
  Sender: FDA-Public Use
  Company Number: None

PATIENT
  Sex: Female
  Weight: 36 kg

DRUGS (2)
  1. OXYCONTIN [Suspect]
     Indication: PROCEDURAL PAIN
     Dosage: PRN PO
     Route: 048
     Dates: start: 20100110, end: 20100201
  2. OXYCODONE [Suspect]
     Dosage: PRN PO
     Route: 048

REACTIONS (4)
  - CHEST DISCOMFORT [None]
  - DYSPNOEA [None]
  - HYPOTENSION [None]
  - URTICARIA [None]
